FAERS Safety Report 18488072 (Version 1)
Quarter: 2020Q4

REPORT INFORMATION
  Report Type: Spontaneous
  Country: PL (occurrence: PL)
  Receive Date: 20201111
  Receipt Date: 20201111
  Transmission Date: 20210114
  Serious: Yes (Other)
  Sender: FDA-Public Use
  Company Number: PL-BIOGEN-2020BI00942964

PATIENT
  Sex: Female

DRUGS (1)
  1. TECFIDERA [Suspect]
     Active Substance: DIMETHYL FUMARATE
     Indication: MULTIPLE SCLEROSIS
     Dosage: TECFIDERA 480MG DAILY, PER OS
     Route: 048
     Dates: start: 20191104, end: 20200916

REACTIONS (8)
  - Hepatic neoplasm [Unknown]
  - Gallbladder cancer [Unknown]
  - Hepatic adenoma [Unknown]
  - Bile duct cancer [Unknown]
  - Lip and/or oral cavity cancer [Unknown]
  - Focal nodular hyperplasia [Unknown]
  - Abdominal discomfort [Unknown]
  - Abdominal distension [Unknown]
